FAERS Safety Report 14559205 (Version 1)
Quarter: 2018Q1

REPORT INFORMATION
  Report Type: Spontaneous
  Country: US (occurrence: US)
  Receive Date: 20180221
  Receipt Date: 20180221
  Transmission Date: 20180509
  Serious: No
  Sender: FDA-Public Use
  Company Number: None

PATIENT
  Age: 84 Year
  Sex: Male
  Weight: 99.79 kg

DRUGS (5)
  1. ASPIRIN 81 MG [Concomitant]
     Active Substance: ASPIRIN
  2. METOPROLOL SUCC ER 25MG TAB [Suspect]
     Active Substance: METOPROLOL SUCCINATE
     Indication: HEART RATE INCREASED
     Dosage: DATES OF USE - START 31OCT2017 - 60 DAYS - 1 REFILL - STOP 22JAN2018?DOSE - 1/2 PILL ONCE A DAY - PO?
     Route: 048
     Dates: start: 20171031, end: 20180127
  3. HALOBETASOL [Concomitant]
     Active Substance: HALOBETASOL PROPIONATE
  4. CICLOPIROX. [Concomitant]
     Active Substance: CICLOPIROX
  5. VITAMIN D3 [Concomitant]
     Active Substance: CHOLECALCIFEROL

REACTIONS (1)
  - Rash [None]

NARRATIVE: CASE EVENT DATE: 201712
